FAERS Safety Report 6406047-8 (Version None)
Quarter: 2009Q4

REPORT INFORMATION
  Report Type: 
  Country: None (occurrence: None)
  Receive Date: 20091019
  Receipt Date: 20091014
  Transmission Date: 20100525
  Serious: Yes (Hospitalization)
  Sender: FDA-Public Use
  Company Number: US-AMGEN-KDL357504

PATIENT
  Sex: Female
  Weight: 85.4 kg

DRUGS (4)
  1. PROCRIT [Suspect]
     Indication: ANAEMIA
     Route: 058
     Dates: start: 20080902, end: 20090623
  2. FERROUS SULFATE TAB [Concomitant]
  3. INTERFERON [Concomitant]
     Dates: start: 20090331, end: 20090623
  4. RIBAVIRIN [Concomitant]
     Dates: start: 20090331, end: 20090623

REACTIONS (2)
  - REFRACTORY ANAEMIA [None]
  - RETICULOCYTE COUNT INCREASED [None]
